FAERS Safety Report 5323957-3 (Version None)
Quarter: 2007Q2

REPORT INFORMATION
  Report Type: 
  Country: None (occurrence: None)
  Receive Date: 20070509
  Receipt Date: 20070509
  Transmission Date: 20071010
  Serious: Yes (Hospitalization)
  Sender: FDA-Public Use
  Company Number: None

PATIENT
  Sex: Female
  Weight: 61.2356 kg

DRUGS (15)
  1. ARANESP [Suspect]
     Indication: ANAEMIA
     Dosage: 400 UG PRN SQ
     Route: 058
     Dates: start: 20001103, end: 20070111
  2. AVASTIN [Suspect]
     Indication: BREAST CANCER METASTATIC
     Dosage: 10 MG/KG Q2 WKS IV
     Route: 042
     Dates: start: 20060912, end: 20070102
  3. GEMZAR [Suspect]
     Indication: BREAST CANCER METASTATIC
     Dosage: 2000 MG/M2 Q2 WKS IV
     Route: 042
     Dates: start: 20060912, end: 20061211
  4. SUTENT [Suspect]
     Indication: BREAST CANCER METASTATIC
     Dosage: 50 MG QD PO
     Route: 048
     Dates: start: 20070201, end: 20070307
  5. FOSAMAX [Concomitant]
  6. CORDARONE [Concomitant]
  7. ELAVIL [Concomitant]
  8. TENORMIN [Concomitant]
  9. LIPITOR [Concomitant]
  10. NEXIUM [Concomitant]
  11. FLONASE [Concomitant]
  12. GLUCOTROL [Concomitant]
  13. LEVOXYL [Concomitant]
  14. PAXIL [Concomitant]
  15. AVANDIN [Concomitant]

REACTIONS (2)
  - DYSPHAGIA [None]
  - GASTROENTERITIS [None]
